FAERS Safety Report 21016922 (Version 2)
Quarter: 2022Q3

REPORT INFORMATION
  Report Type: Report from Study
  Country: CA (occurrence: CA)
  Receive Date: 20220628
  Receipt Date: 20220718
  Transmission Date: 20221027
  Serious: Yes (Hospitalization, Other)
  Sender: FDA-Public Use
  Company Number: CA-OTSUKA-2022_004325

PATIENT
  Sex: Male

DRUGS (2)
  1. CEDAZURIDINE\DECITABINE [Suspect]
     Active Substance: CEDAZURIDINE\DECITABINE
     Indication: Myelodysplastic syndrome
     Dosage: UNK
     Route: 065
     Dates: start: 20211206
  2. CEDAZURIDINE\DECITABINE [Suspect]
     Active Substance: CEDAZURIDINE\DECITABINE
     Dosage: UNK, (ONLY TOOK 2 PILLS OF 3 PILL CYCLE)
     Route: 065

REACTIONS (5)
  - Hip fracture [Unknown]
  - Lower limb fracture [Unknown]
  - Neoplasm malignant [Unknown]
  - Therapy interrupted [Unknown]
  - Product use issue [Unknown]
